FAERS Safety Report 7265843-8 (Version None)
Quarter: 2011Q1

REPORT INFORMATION
  Report Type: 
  Country: None (occurrence: None)
  Receive Date: 20110131
  Receipt Date: 20110126
  Transmission Date: 20110831
  Serious: Yes (Hospitalization)
  Sender: FDA-Public Use
  Company Number: A0909493A

PATIENT
  Sex: Female

DRUGS (3)
  1. KLONOPIN [Suspect]
  2. LISINOPRIL [Suspect]
  3. COREG CR [Suspect]
     Dosage: 80MG PER DAY
     Route: 048

REACTIONS (1)
  - VENTRICULAR TACHYCARDIA [None]
